FAERS Safety Report 9447774 (Version 1)
Quarter: 2013Q3

REPORT INFORMATION
  Report Type: Spontaneous
  Country: FR (occurrence: None)
  Receive Date: 20130805
  Receipt Date: 20130805
  Transmission Date: 20140515
  Serious: Yes (Other)
  Sender: FDA-Public Use
  Company Number: 1760268

PATIENT
  Age: 80 Year
  Sex: Female

DRUGS (10)
  1. CARBOPLATIN [Suspect]
     Indication: PRODUCT USED FOR UNKNOWN INDICATION
     Route: 042
     Dates: start: 20100910, end: 20101231
  2. PACLITAXEL [Concomitant]
  3. XYZALL [Concomitant]
  4. AZANTAC [Concomitant]
  5. SOLUPRED [Concomitant]
  6. DEXAMETHASONE [Concomitant]
  7. ODANSETRON [Concomitant]
  8. TARDYFERON [Concomitant]
  9. OROPERIDYS [Concomitant]
  10. INEXIUM [Concomitant]

REACTIONS (9)
  - Skin warm [None]
  - Fatigue [None]
  - Paraesthesia [None]
  - Dizziness [None]
  - Diarrhoea [None]
  - Erythema [None]
  - Oxygen saturation decreased [None]
  - Pruritus generalised [None]
  - Type I hypersensitivity [None]
